FAERS Safety Report 17281341 (Version 1)
Quarter: 2020Q1

REPORT INFORMATION
  Report Type: Spontaneous
  Country: US (occurrence: US)
  Receive Date: 20200117
  Receipt Date: 20200117
  Transmission Date: 20200409
  Serious: No
  Sender: FDA-Public Use
  Company Number: US-AUROBINDO-AUR-APL-2019-037072

PATIENT
  Age: 55 Year
  Sex: Female
  Weight: 48 kg

DRUGS (1)
  1. DEXAMFETAMINE+AMFETAMINE TABLET [Suspect]
     Active Substance: AMPHETAMINE\DEXTROAMPHETAMINE
     Indication: ATTENTION DEFICIT/HYPERACTIVITY DISORDER
     Dosage: 3 DOSAGE FORM, ONCE A DAY
     Route: 065
     Dates: start: 201804, end: 201905

REACTIONS (4)
  - Mouth ulceration [Recovered/Resolved]
  - Tongue ulceration [Recovered/Resolved]
  - Ulcer [Recovered/Resolved]
  - Pain [Recovered/Resolved]
